FAERS Safety Report 4942655-9 (Version None)
Quarter: 2006Q1

REPORT INFORMATION
  Report Type: 
  Country: None (occurrence: None)
  Receive Date: 20060308
  Receipt Date: 20060301
  Transmission Date: 20060701
  Serious: Yes (Hospitalization)
  Sender: FDA-Public Use
  Company Number: 200610247BNE

PATIENT
  Age: 26 Year
  Sex: Female

DRUGS (3)
  1. CIPROFLOXACIN HCL [Suspect]
     Indication: URINARY TRACT INFECTION
     Dosage: 400 MG, BID
     Dates: start: 20060131, end: 20060206
  2. VENLAFAXINE HCL [Suspect]
     Indication: POSTPARTUM DEPRESSION
     Dosage: 75 MG, TOTAL DAILY, ORAL
     Route: 048
  3. HALOPERIDOL [Suspect]

REACTIONS (10)
  - CONFUSIONAL STATE [None]
  - DISINHIBITION [None]
  - DISORIENTATION [None]
  - ELEVATED MOOD [None]
  - EXTRAPYRAMIDAL DISORDER [None]
  - HALLUCINATION, AUDITORY [None]
  - HALLUCINATION, VISUAL [None]
  - HYPOAESTHESIA [None]
  - PSYCHOTIC DISORDER [None]
  - THINKING ABNORMAL [None]
